FAERS Safety Report 7221566-2 (Version None)
Quarter: 2011Q1

REPORT INFORMATION
  Report Type: 
  Country: None (occurrence: None)
  Receive Date: 20110112
  Receipt Date: 20110106
  Transmission Date: 20110831
  Serious: Yes (Other)
  Sender: FDA-Public Use
  Company Number: US-PFIZER INC-2011004744

PATIENT
  Sex: Female

DRUGS (1)
  1. VERAPAMIL HCL [Suspect]
     Indication: HYPERTENSION

REACTIONS (3)
  - CARDIAC DISORDER [None]
  - ABDOMINAL DISCOMFORT [None]
  - NAUSEA [None]
